FAERS Safety Report 19978178 (Version 1)
Quarter: 2021Q4

REPORT INFORMATION
  Report Type: Spontaneous
  Country: US (occurrence: US)
  Receive Date: 20211020
  Receipt Date: 20211020
  Transmission Date: 20220303
  Serious: Yes (Death, Other)
  Sender: FDA-Public Use
  Company Number: US-GLAXOSMITHKLINE-US2021GSK214920

PATIENT
  Sex: Male

DRUGS (4)
  1. ZANTAC [Suspect]
     Active Substance: RANITIDINE HYDROCHLORIDE
     Indication: Flatulence
     Dosage: UNK, QD
     Route: 065
     Dates: start: 201401, end: 201701
  2. ZANTAC [Suspect]
     Active Substance: RANITIDINE HYDROCHLORIDE
     Indication: Flatulence
     Dosage: UNK, QD
     Route: 065
     Dates: start: 201401, end: 201701
  3. RANITIDINE [Suspect]
     Active Substance: RANITIDINE
     Indication: Flatulence
     Dosage: 150 MG, QD
     Route: 065
     Dates: start: 201001, end: 201701
  4. RANITIDINE [Suspect]
     Active Substance: RANITIDINE
     Indication: Flatulence
     Dosage: 150 MG, QD
     Route: 065
     Dates: start: 201001, end: 201701

REACTIONS (3)
  - Oesophageal carcinoma [Fatal]
  - Gastric cancer [Fatal]
  - Non-Hodgkin^s lymphoma [Fatal]
